FAERS Safety Report 6384046-2 (Version None)
Quarter: 2009Q4

REPORT INFORMATION
  Report Type: 
  Country: None (occurrence: None)
  Receive Date: 20091001
  Receipt Date: 20090926
  Transmission Date: 20100525
  Serious: Yes (Other)
  Sender: FDA-Public Use
  Company Number: JP-ABBOTT-09P-087-0599853-00

PATIENT
  Age: 89 Year
  Sex: Female
  Weight: 45 kg

DRUGS (5)
  1. SEVOFLURANE [Suspect]
     Indication: ANAESTHESIA
     Route: 055
  2. ROPIVACAINE [Suspect]
     Indication: ANAESTHESIA
     Route: 008
  3. HALOPERIDOL [Suspect]
     Indication: DEMENTIA
  4. FENTANYL [Concomitant]
     Indication: ANAESTHESIA
     Route: 042
  5. PROPOFOL [Concomitant]
     Indication: ANAESTHESIA
     Route: 042

REACTIONS (1)
  - TORSADE DE POINTES [None]
